FAERS Safety Report 12271029 (Version 3)
Quarter: 2017Q2

REPORT INFORMATION
  Report Type: Report from Study
  Country: US (occurrence: US)
  Receive Date: 20160415
  Receipt Date: 20170609
  Transmission Date: 20170830
  Serious: Yes (Other)
  Sender: FDA-Public Use
  Company Number: PHEH2016US009175

PATIENT
  Age: 33 Year
  Sex: Female
  Weight: 68.48 kg

DRUGS (4)
  1. CLONAZEPAM. [Concomitant]
     Active Substance: CLONAZEPAM
     Indication: PRODUCT USED FOR UNKNOWN INDICATION
     Dosage: 0.5 MG, UNK
     Route: 065
  2. GILENYA [Suspect]
     Active Substance: FINGOLIMOD HYDROCHLORIDE
     Indication: MULTIPLE SCLEROSIS
     Dosage: 0.5 MG, QD
     Route: 048
     Dates: start: 20151211
  3. ZONISAMIDE. [Concomitant]
     Active Substance: ZONISAMIDE
     Indication: PRODUCT USED FOR UNKNOWN INDICATION
     Dosage: 100 MG, UNK
     Route: 065
  4. SPRINTEC [Concomitant]
     Active Substance: ETHINYL ESTRADIOL\NORGESTIMATE
     Indication: PRODUCT USED FOR UNKNOWN INDICATION
     Dosage: 28 TAB FOR 28 DAY
     Route: 065

REACTIONS (4)
  - Chest pain [Recovering/Resolving]
  - Back pain [Unknown]
  - Pain in extremity [Unknown]
  - Myalgia [Unknown]

NARRATIVE: CASE EVENT DATE: 20151211
